FAERS Safety Report 5678993-4 (Version None)
Quarter: 2008Q1

REPORT INFORMATION
  Report Type: 
  Country: None (occurrence: None)
  Receive Date: 20080321
  Receipt Date: 20080314
  Transmission Date: 20080703
  Serious: Yes (Other)
  Sender: FDA-Public Use
  Company Number: 2008SP005330

PATIENT
  Age: 49 Year
  Sex: Female
  Weight: 75.7507 kg

DRUGS (2)
  1. PEG-INTRON [Suspect]
     Indication: HEPATITIS C
     Dates: start: 20080207
  2. REBETOL [Suspect]
     Indication: HEPATITIS C
     Dosage: PO
     Route: 048
     Dates: start: 20080207

REACTIONS (7)
  - BALANCE DISORDER [None]
  - DIZZINESS [None]
  - FATIGUE [None]
  - INSOMNIA [None]
  - MEMORY IMPAIRMENT [None]
  - SCAPULA FRACTURE [None]
  - STRESS [None]
